FAERS Safety Report 10965135 (Version 1)
Quarter: 2015Q1

REPORT INFORMATION
  Report Type: Other
  Country: NO (occurrence: NO)
  Receive Date: 20150330
  Receipt Date: 20150330
  Transmission Date: 20150721
  Serious: Yes (Other)
  Sender: FDA-Public Use
  Company Number: NO-LUPIN PHARMACEUTICALS INC.-2015-00882

PATIENT
  Age: 55 Year
  Sex: Female

DRUGS (6)
  1. DULOXETINE [Interacting]
     Active Substance: DULOXETINE
     Indication: PAIN IN EXTREMITY
     Dosage: 60 MG DAILY
     Route: 065
  2. CIPROFLOXACIN. [Interacting]
     Active Substance: CIPROFLOXACIN
     Indication: URINARY TRACT INFECTION
     Route: 065
  3. DULOXETINE [Interacting]
     Active Substance: DULOXETINE
     Indication: PAIN IN EXTREMITY
  4. TRAMADOL PROLONGED RELEASE TABLETS [Suspect]
     Active Substance: TRAMADOL
     Indication: PAIN IN EXTREMITY
     Route: 065
  5. TRAMADOL PROLONGED RELEASE TABLETS [Interacting]
     Active Substance: TRAMADOL
     Dosage: 600 MG DAILY
     Route: 065
  6. TRAMADOL PROLONGED RELEASE TABLETS [Interacting]
     Active Substance: TRAMADOL
     Dosage: 800 MG DAILY
     Route: 065

REACTIONS (4)
  - Drug interaction [Unknown]
  - Overdose [Unknown]
  - Serotonin syndrome [Unknown]
  - Intentional overdose [None]
